FAERS Safety Report 21492307 (Version 1)
Quarter: 2022Q4

REPORT INFORMATION
  Report Type: Spontaneous
  Country: US (occurrence: None)
  Receive Date: 20221020
  Receipt Date: 20221020
  Transmission Date: 20230113
  Serious: Yes (Other)
  Sender: FDA-Public Use
  Company Number: None

PATIENT
  Age: 82 Week
  Sex: Female
  Weight: 72 kg

DRUGS (1)
  1. SEVELAMER CARBONATE [Suspect]
     Active Substance: SEVELAMER CARBONATE
     Indication: Drug therapy
     Dosage: OTHER QUANTITY : 270 TABLET(S);?OTHER FREQUENCY : 2 THREE TIMES DAY;?
     Route: 048
     Dates: start: 20221018, end: 20221019

REACTIONS (4)
  - Flatulence [None]
  - Nausea [None]
  - Diarrhoea [None]
  - Dyspepsia [None]

NARRATIVE: CASE EVENT DATE: 20221018
